FAERS Safety Report 9060042 (Version 1)
Quarter: 2013Q1

REPORT INFORMATION
  Report Type: Spontaneous
  Country: US (occurrence: None)
  Receive Date: 20130207
  Receipt Date: 20130207
  Transmission Date: 20140127
  Serious: Yes (Hospitalization)
  Sender: FDA-Public Use
  Company Number: None

PATIENT
  Sex: Female
  Weight: 47.2 kg

DRUGS (4)
  1. ABRAXANE [Suspect]
     Indication: PANCREATIC CARCINOMA METASTATIC
     Dosage: ABRAXANE 125MG/M2 Q14DAYS IV
     Route: 042
     Dates: start: 20121219, end: 20130129
  2. OXALIPLATIN [Suspect]
     Indication: PANCREATIC CARCINOMA METASTATIC
     Dosage: OXALIPLATIN 85MG/2 Q14DAYS IV
     Route: 042
     Dates: start: 20121219, end: 20130129
  3. LEUCOVORIN [Suspect]
     Dosage: LEUCO 400MG/M2 Q14DAYS IV
     Route: 042
     Dates: start: 20121219, end: 20130129
  4. 5FU [Suspect]
     Dosage: 5FU 1200MG/M2 X2DAYS CIV 46HRS
     Dates: start: 20121219, end: 20130129

REACTIONS (3)
  - Catheter site erythema [None]
  - Catheter site discharge [None]
  - Infection [None]
